FAERS Safety Report 4715969-5 (Version None)
Quarter: 2005Q3

REPORT INFORMATION
  Report Type: 
  Country: None (occurrence: None)
  Receive Date: 20050718
  Receipt Date: 20050315
  Transmission Date: 20060218
  Serious: Yes (Other)
  Sender: FDA-Public Use
  Company Number: US-MERCK-0503USA03198

PATIENT
  Age: 43 Year
  Sex: Male
  Weight: 83 kg

DRUGS (6)
  1. VIOXX [Suspect]
     Indication: NECK PAIN
     Route: 048
     Dates: start: 20040524, end: 20040724
  2. VIOXX [Suspect]
     Route: 065
     Dates: start: 20001012, end: 20001115
  3. DURAGESIC-100 [Concomitant]
     Route: 065
  4. MS CONTIN [Concomitant]
     Route: 065
  5. SENOKOT [Concomitant]
     Route: 065
  6. COLACE [Concomitant]
     Route: 065

REACTIONS (3)
  - CEREBROVASCULAR ACCIDENT [None]
  - GASTROINTESTINAL DISORDER [None]
  - TRANSIENT ISCHAEMIC ATTACK [None]
